FAERS Safety Report 4566574-5 (Version None)
Quarter: 2005Q1

REPORT INFORMATION
  Report Type: 
  Country: None (occurrence: None)
  Receive Date: 20050126
  Receipt Date: 20050110
  Transmission Date: 20050727
  Serious: Yes (Death, Hospitalization)
  Sender: FDA-Public Use
  Company Number: 203165

PATIENT
  Age: 66 Year
  Sex: Female
  Weight: 43.0917 kg

DRUGS (14)
  1. AVONEX [Suspect]
     Indication: MULTIPLE SCLEROSIS
     Dosage: 30 UG;QW;IM
     Route: 030
     Dates: start: 19990201, end: 20040101
  2. AVONEX [Suspect]
     Indication: MULTIPLE SCLEROSIS
     Dosage: 30 UG;QW;IM
     Route: 030
     Dates: start: 20040524
  3. AVONEX [Suspect]
     Indication: MULTIPLE SCLEROSIS
     Dosage: 30 UG;QW;IM
     Route: 030
     Dates: start: 20040101
  4. NEURONTIN [Concomitant]
  5. METHOTREXATE [Concomitant]
  6. FOLIC ACID [Concomitant]
  7. CELEBREX [Concomitant]
  8. FEMHRT [Concomitant]
  9. LEXAPRO [Concomitant]
  10. LIPITOR [Concomitant]
  11. 4-AMINOPYRIDINE [Concomitant]
  12. POTASSIUM CHLORIDE [Concomitant]
  13. CALCIUM CITRATE [Concomitant]
  14. FOSAMAX [Concomitant]

REACTIONS (45)
  - ALANINE AMINOTRANSFERASE INCREASED [None]
  - AMNESIA [None]
  - ANOREXIA [None]
  - APHASIA [None]
  - ASPARTATE AMINOTRANSFERASE INCREASED [None]
  - BASOPHIL PERCENTAGE INCREASED [None]
  - BLADDER SQUAMOUS CELL CARCINOMA STAGE UNSPECIFIED [None]
  - BLOOD CALCIUM INCREASED [None]
  - BLOOD GLUCOSE INCREASED [None]
  - BLOOD PH INCREASED [None]
  - BLOOD POTASSIUM INCREASED [None]
  - BLOOD SODIUM DECREASED [None]
  - CHEST PAIN [None]
  - CLOSTRIDIAL INFECTION [None]
  - CONVULSION [None]
  - DEHYDRATION [None]
  - DIARRHOEA [None]
  - DYSPNOEA [None]
  - ENCEPHALOPATHY [None]
  - FAECAL INCONTINENCE [None]
  - HAEMATOCRIT DECREASED [None]
  - HAEMOGLOBIN DECREASED [None]
  - HYPERCHOLESTEROLAEMIA [None]
  - INFLUENZA LIKE ILLNESS [None]
  - LOW DENSITY LIPOPROTEIN INCREASED [None]
  - LYMPHOCYTE PERCENTAGE DECREASED [None]
  - METASTASES TO LUNG [None]
  - METASTASES TO SPINE [None]
  - NAUSEA [None]
  - ORAL CANDIDIASIS [None]
  - ORAL INTAKE REDUCED [None]
  - PCO2 DECREASED [None]
  - PLATELET COUNT INCREASED [None]
  - PO2 INCREASED [None]
  - POST PROCEDURAL COMPLICATION [None]
  - POSTOPERATIVE ILEUS [None]
  - RED BLOOD CELL COUNT DECREASED [None]
  - RED CELL DISTRIBUTION WIDTH INCREASED [None]
  - SINUS TACHYCARDIA [None]
  - SMALL INTESTINAL OBSTRUCTION [None]
  - TRANSIENT ISCHAEMIC ATTACK [None]
  - URINARY TRACT INFECTION ENTEROCOCCAL [None]
  - URINARY TRACT INFECTION FUNGAL [None]
  - VOMITING [None]
  - WEIGHT DECREASED [None]
